FAERS Safety Report 14112065 (Version 1)
Quarter: 2017Q4

REPORT INFORMATION
  Report Type: Report from Study
  Country: US (occurrence: US)
  Receive Date: 20171020
  Receipt Date: 20171020
  Transmission Date: 20180321
  Serious: Yes (Hospitalization)
  Sender: FDA-Public Use
  Company Number: US-PFIZER INC-20121000130

PATIENT
  Age: 78 Year
  Sex: Male

DRUGS (28)
  1. FENTANYL CITRATE. [Concomitant]
     Active Substance: FENTANYL CITRATE
     Dosage: 25 UG, 2X/DAY
     Route: 042
     Dates: start: 20121011, end: 20121011
  2. DEXAMETHASONE SODIUM PHOSPHATE. [Concomitant]
     Active Substance: DEXAMETHASONE SODIUM PHOSPHATE
     Indication: LUMBAR SPINAL STENOSIS
     Dosage: 8 MG, SINGLE, ONCE
     Route: 042
     Dates: start: 20121011, end: 20121011
  3. ASTEPRO [Concomitant]
     Active Substance: AZELASTINE HYDROCHLORIDE
     Indication: ASTHMA
     Dosage: 205.5 UG, 1X/DAY
     Route: 048
     Dates: start: 201202
  4. BETAMETHASONE DIPROPIONATE. [Concomitant]
     Active Substance: BETAMETHASONE DIPROPIONATE
     Indication: ECZEMA
     Dosage: 0.05 %, AS NEEDED
     Route: 061
     Dates: start: 2010
  5. FLAXSEED [Concomitant]
     Active Substance: FLAX SEED
     Indication: NUTRITIONAL SUPPLEMENTATION
     Dosage: 1300 MG, 1X/DAY
     Route: 048
     Dates: start: 2011
  6. HYDROCODONE [Concomitant]
     Active Substance: HYDROCODONE
     Indication: BACK PAIN
     Dosage: UNK UNK, AS NEEDED, 5/500
     Route: 058
     Dates: start: 20121006
  7. ENZALUTAMIDE [Suspect]
     Active Substance: ENZALUTAMIDE
     Indication: PROSTATE CANCER
     Dosage: UNK UNK, 1X/DAY
     Route: 048
     Dates: start: 20120911, end: 20121024
  8. VESICARE [Concomitant]
     Active Substance: SOLIFENACIN SUCCINATE
     Indication: NOCTURIA
     Dosage: 5 MG, 1X/DAY
     Route: 048
     Dates: start: 201202
  9. ASPIRIN. [Concomitant]
     Active Substance: ASPIRIN
     Indication: PROPHYLAXIS
     Dosage: 81 MG, 1X/DAY
     Route: 048
     Dates: start: 2011
  10. VITAMIN D3 [Concomitant]
     Active Substance: CHOLECALCIFEROL
     Indication: NUTRITIONAL SUPPLEMENTATION
     Dosage: 1000 IU, 1X/DAY
     Route: 048
     Dates: start: 2011
  11. CISATRACURIUM BESYLATE. [Concomitant]
     Active Substance: CISATRACURIUM BESYLATE
     Indication: LUMBAR SPINAL STENOSIS
     Dosage: 8 MG, SINGLE, ONCE
     Route: 042
     Dates: start: 20121011, end: 20121011
  12. DENOSUMAB [Concomitant]
     Active Substance: DENOSUMAB
     Indication: OSTEOPOROSIS PROPHYLAXIS
     Dosage: 60 MG, 1 IN 6 MONTHS
     Route: 058
     Dates: start: 20120911
  13. CLOBETASOL PROPIONATE. [Concomitant]
     Active Substance: CLOBETASOL PROPIONATE
     Indication: ECZEMA
     Dosage: 0.05 %, 1 IN 2 WEEKS
     Route: 061
     Dates: start: 2011
  14. ACETAMINOPHEN. [Concomitant]
     Active Substance: ACETAMINOPHEN
     Indication: BACK PAIN
     Dosage: 650 MG, AS NEEDED
     Route: 048
     Dates: start: 201209, end: 20121006
  15. CITALOPRAM [Suspect]
     Active Substance: CITALOPRAM HYDROBROMIDE
     Indication: DEPRESSION
     Dosage: 20 MG, 1X/DAY
     Route: 048
     Dates: start: 20120827
  16. METHOCARBAMOL. [Concomitant]
     Active Substance: METHOCARBAMOL
     Indication: BACK PAIN
     Dosage: 500 MG, AS NEEDED
     Route: 048
     Dates: start: 20121006
  17. AMBIEN [Concomitant]
     Active Substance: ZOLPIDEM TARTRATE
     Indication: INSOMNIA
     Dosage: 5 MG, UNK
     Dates: start: 2010
  18. AMBIEN [Concomitant]
     Active Substance: ZOLPIDEM TARTRATE
     Dosage: 10 MG, 1X/DAY
     Route: 048
     Dates: start: 2011
  19. FENTANYL CITRATE. [Concomitant]
     Active Substance: FENTANYL CITRATE
     Indication: LUMBAR SPINAL STENOSIS
     Dosage: 50 UG, 2X/DAY
     Route: 042
     Dates: start: 20121011, end: 20121011
  20. CEFAZOLIN SODIUM. [Concomitant]
     Active Substance: CEFAZOLIN SODIUM
     Indication: LUMBAR SPINAL STENOSIS
     Dosage: 1 G, SINGLE, ONCE
     Route: 042
     Dates: start: 20121011, end: 20121011
  21. PRISTIQ EXTENDED-RELEASE [Suspect]
     Active Substance: DESVENLAFAXINE SUCCINATE
     Dosage: UNK
     Dates: start: 20121012, end: 20121015
  22. FLUTICASONE PROPRIONATE [Concomitant]
     Active Substance: FLUTICASONE PROPIONATE
     Indication: ASTHMA
     Dosage: 50 UG, 1X/DAY
     Route: 045
     Dates: start: 2008
  23. CALCIUM D3 /00944201/ [Concomitant]
     Active Substance: CALCIUM CARBONATE\CHOLECALCIFEROL
     Indication: NUTRITIONAL SUPPLEMENTATION
     Dosage: 600MG+ 400 IU, 1X/DAY
     Route: 048
     Dates: start: 2011
  24. LUTEIN ZEAXANTHIN [Concomitant]
     Indication: NUTRITIONAL SUPPLEMENTATION
     Dosage: 25MG+ 5 MG, 1X/DAY
     Route: 048
     Dates: start: 2011
  25. PROBIOTIC /06395501/ [Concomitant]
     Active Substance: BIFIDOBACTERIUM ANIMALIS LACTIS
     Indication: NUTRITIONAL SUPPLEMENTATION
     Dosage: 1 DF, 1X/DAY
     Route: 048
     Dates: start: 2011
  26. DIGESTIVE ENZYME [Concomitant]
     Active Substance: UNSPECIFIED INGREDIENT
     Indication: MEDICAL DIET
     Dosage: UNK UNK, 1X/DAY
     Route: 048
     Dates: start: 2011
  27. PROPOFOL. [Concomitant]
     Active Substance: PROPOFOL
     Indication: LUMBAR SPINAL STENOSIS
     Dosage: 120 MG, SINGLE, ONCE
     Route: 042
     Dates: start: 20121011, end: 20121011
  28. LIDOCAINE HCL [Concomitant]
     Active Substance: LIDOCAINE HYDROCHLORIDE
     Indication: LUMBAR SPINAL STENOSIS
     Dosage: 30 MG, SINGLE, ONCE
     Route: 042
     Dates: start: 20121011, end: 20121011

REACTIONS (2)
  - Duodenal ulcer [Recovered/Resolved]
  - Inappropriate antidiuretic hormone secretion [Recovered/Resolved]

NARRATIVE: CASE EVENT DATE: 20121025
